FAERS Safety Report 12305273 (Version 1)
Quarter: 2016Q2

REPORT INFORMATION
  Report Type: Report from Study
  Country: CN (occurrence: CN)
  Receive Date: 20160426
  Receipt Date: 20160426
  Transmission Date: 20160815
  Serious: Yes (Hospitalization)
  Sender: FDA-Public Use
  Company Number: CN-ROCHE-1746073

PATIENT
  Sex: Female
  Weight: 47 kg

DRUGS (1)
  1. AVASTIN [Suspect]
     Active Substance: BEVACIZUMAB
     Indication: RECTAL CANCER RECURRENT
     Route: 041
     Dates: start: 20140425, end: 20160315

REACTIONS (6)
  - Generalised oedema [Recovering/Resolving]
  - Infection [Unknown]
  - Lung disorder [Unknown]
  - Peripheral swelling [Unknown]
  - Blood pressure increased [Recovering/Resolving]
  - Skin discolouration [Unknown]
